FAERS Safety Report 4979146-5 (Version None)
Quarter: 2006Q2

REPORT INFORMATION
  Report Type: 
  Country: None (occurrence: None)
  Receive Date: 20060421
  Receipt Date: 20060410
  Transmission Date: 20061013
  Serious: Yes (Other)
  Sender: FDA-Public Use
  Company Number: AT-BRISTOL-MYERS SQUIBB COMPANY-13341938

PATIENT
  Age: 69 Year
  Sex: Male

DRUGS (2)
  1. TRIAMCINOLONE [Suspect]
     Indication: MACULAR OEDEMA
  2. TRIAMCINOLONE [Suspect]
     Indication: RETINAL ISCHAEMIA

REACTIONS (2)
  - ENDOPHTHALMITIS [None]
  - NECROTISING RETINITIS [None]
